FAERS Safety Report 4336279-4 (Version None)
Quarter: 2004Q2

REPORT INFORMATION
  Report Type: 
  Country: None (occurrence: None)
  Receive Date: 20040407
  Receipt Date: 20040318
  Transmission Date: 20050107
  Serious: Yes (Other)
  Sender: FDA-Public Use
  Company Number: USA031254600

PATIENT
  Age: 72 Year
  Sex: Female

DRUGS (11)
  1. FORTEO [Suspect]
     Indication: OSTEOPOROSIS
     Dates: start: 20031211
  2. CELEBREX [Concomitant]
  3. FOSAMAX [Concomitant]
  4. INDERAL [Concomitant]
  5. RISPERDAL [Concomitant]
  6. CARDENE [Concomitant]
  7. OXAZEPAM [Concomitant]
  8. AMITRIPTYLINE HCL [Concomitant]
  9. ASPIRIN [Concomitant]
  10. MULTI-VITAMIN [Concomitant]
  11. OSCAL (CALCIUM CARBONATE) [Concomitant]

REACTIONS (4)
  - CATARACT [None]
  - INJECTION SITE HAEMORRHAGE [None]
  - PHARMACEUTICAL PRODUCT COMPLAINT [None]
  - RIB FRACTURE [None]
